FAERS Safety Report 7520713-2 (Version None)
Quarter: 2011Q2

REPORT INFORMATION
  Report Type: 
  Country: None (occurrence: None)
  Receive Date: 20110603
  Receipt Date: 20101013
  Transmission Date: 20111010
  Serious: Yes (Death, Other)
  Sender: FDA-Public Use
  Company Number: JP-BAYER-200913002BYL

PATIENT
  Age: 79 Year
  Sex: Female

DRUGS (12)
  1. MUCOSTA [Concomitant]
     Dosage: 300 MG (DAILY DOSE), , ORAL
     Route: 048
     Dates: end: 20090824
  2. CONFATANIN [Concomitant]
     Indication: CANCER PAIN
     Dosage: 180 MG (DAILY DOSE), , ORAL
     Route: 048
     Dates: end: 20090824
  3. MAALOX [Concomitant]
     Dosage: 3.6 G (DAILY DOSE), , ORAL
     Route: 048
     Dates: end: 20090824
  4. LANSOPRAZOLE [Concomitant]
     Dosage: 15 MG (DAILY DOSE), , ORAL
     Route: 048
     Dates: end: 20090824
  5. ALDACTONE [Concomitant]
     Dosage: 25 MG (DAILY DOSE), , ORAL
     Route: 048
     Dates: end: 20090824
  6. TRICHLORMETHIAZIDE [Concomitant]
     Dosage: 1 MG (DAILY DOSE), , ORAL
     Route: 048
     Dates: start: 20090731, end: 20090815
  7. NEXAVAR [Suspect]
     Indication: HEPATIC NEOPLASM MALIGNANT
     Route: 048
     Dates: start: 20090813, end: 20090817
  8. MAGNESIUM SULFATE [Concomitant]
     Dosage: 990 MG (DAILY DOSE), , ORAL
     Route: 048
     Dates: end: 20090824
  9. NEXAVAR [Suspect]
  10. LIVACT [Concomitant]
     Dosage: 12.45 G (DAILY DOSE), , ORAL
     Route: 048
     Dates: end: 20090824
  11. LASIX [Concomitant]
     Dosage: 20 MG (DAILY DOSE), , ORAL
     Route: 048
     Dates: end: 20090824
  12. URSO 250 [Concomitant]
     Dosage: 600 MG (DAILY DOSE), , ORAL
     Route: 048
     Dates: end: 20090824

REACTIONS (6)
  - HEPATIC NEOPLASM MALIGNANT [None]
  - HYPERAMMONAEMIA [None]
  - LIPASE INCREASED [None]
  - HEPATIC ENCEPHALOPATHY [None]
  - ALBUMIN GLOBULIN RATIO DECREASED [None]
  - ASCITES [None]
